FAERS Safety Report 23395076 (Version 1)
Quarter: 2024Q1

REPORT INFORMATION
  Report Type: Spontaneous
  Country: KR (occurrence: KR)
  Receive Date: 20240112
  Receipt Date: 20240112
  Transmission Date: 20240410
  Serious: Yes (Other)
  Sender: FDA-Public Use
  Company Number: KR-PIRAMAL CRITICAL CARE LIMITED-2024-PPL-000014

PATIENT

DRUGS (2)
  1. TERRELL [Suspect]
     Active Substance: ISOFLURANE
     Indication: Induction of anaesthesia
     Dosage: 5% IN 100% OXYGEN
  2. TERRELL [Suspect]
     Active Substance: ISOFLURANE
     Indication: Maintenance of anaesthesia
     Dosage: 2% IN 100% OXYGEN

REACTIONS (3)
  - Respiratory arrest [Recovered/Resolved]
  - Apnoea [Recovered/Resolved]
  - Off label use [Unknown]
